FAERS Safety Report 7053827-4 (Version None)
Quarter: 2010Q4

REPORT INFORMATION
  Report Type: 
  Country: None (occurrence: None)
  Receive Date: 20101020
  Receipt Date: 20101007
  Transmission Date: 20110411
  Serious: Yes (Other)
  Sender: FDA-Public Use
  Company Number: PHHY2010JP67450

PATIENT
  Sex: Male
  Weight: 56 kg

DRUGS (10)
  1. AFINITOR [Suspect]
     Indication: METASTATIC RENAL CELL CARCINOMA
     Dosage: 10 MG, DAILY
     Route: 048
     Dates: start: 20100525
  2. INTERFERON ALFA [Concomitant]
     Indication: METASTATIC RENAL CELL CARCINOMA
     Dosage: 3000000DF, UNK
     Dates: start: 20080121, end: 20080620
  3. SORAFENIB TOSILATE [Concomitant]
     Indication: METASTATIC RENAL CELL CARCINOMA
     Dosage: 800 MG, UNK
     Route: 048
     Dates: start: 20080620, end: 20100304
  4. SORAFENIB TOSILATE [Concomitant]
     Dosage: 800 MG, UNK
     Route: 048
  5. ASPIRIN [Concomitant]
     Dosage: 100 G, UNK
     Route: 048
     Dates: start: 20100525
  6. LASIX [Concomitant]
     Dosage: 10 G, UNK
     Route: 048
     Dates: start: 20100525
  7. CRESTOR [Concomitant]
     Indication: HYPERLIPIDAEMIA
     Dosage: 2.5 MG, UNK
     Route: 048
     Dates: start: 20100525
  8. METFORMIN HCL [Concomitant]
     Indication: DIABETES MELLITUS
     Dosage: 500 G, UNK
     Route: 048
     Dates: start: 20100525
  9. GLIMICRON [Concomitant]
     Indication: DIABETES MELLITUS
     Dosage: 20 MG, UNK
     Route: 048
     Dates: start: 20100525
  10. TAKEPRON [Concomitant]
     Indication: METASTATIC RENAL CELL CARCINOMA
     Dosage: 30 MG, UNK
     Route: 048
     Dates: start: 20100525

REACTIONS (2)
  - BLOOD GLUCOSE INCREASED [None]
  - GLYCOSYLATED HAEMOGLOBIN INCREASED [None]
